FAERS Safety Report 18893963 (Version 1)
Quarter: 2021Q1

REPORT INFORMATION
  Report Type: Spontaneous
  Country: KR (occurrence: KR)
  Receive Date: 20210215
  Receipt Date: 20210215
  Transmission Date: 20210420
  Serious: No
  Sender: FDA-Public Use
  Company Number: KR-ADVANZ PHARMA-202102001081

PATIENT

DRUGS (2)
  1. ALFUZOSIN [Suspect]
     Active Substance: ALFUZOSIN
     Indication: DYSURIA
     Dosage: UNK, TOOK XATRAL XL FOR 6 YEARS, ONGOING, TABLET,  XATRAL XL
     Route: 048
  2. AVODART [Suspect]
     Active Substance: DUTASTERIDE
     Indication: PRODUCT USED FOR UNKNOWN INDICATION
     Dosage: UNK
     Route: 048

REACTIONS (2)
  - Pollakiuria [Unknown]
  - Erectile dysfunction [Unknown]
